FAERS Safety Report 5836136-8 (Version None)
Quarter: 2008Q3

REPORT INFORMATION
  Report Type: 
  Country: None (occurrence: None)
  Receive Date: 20080805
  Receipt Date: 20080723
  Transmission Date: 20090109
  Serious: Yes (Hospitalization, Other)
  Sender: FDA-Public Use
  Company Number: 220001J08DEU

PATIENT
  Age: 12 Year
  Sex: Male
  Weight: 38 kg

DRUGS (3)
  1. SAIZEN [(SOMATROPIN (RDNA ORIGIN) [Suspect]
     Indication: GROWTH HORMONE DEFICIENCY
     Dates: start: 20080507
  2. METHYLPHENIDATE HCL [Concomitant]
  3. THYROID THERAPY [Concomitant]

REACTIONS (4)
  - CONVERSION DISORDER [None]
  - MUSCLE SPASMS [None]
  - POST-TRAUMATIC STRESS DISORDER [None]
  - TREMOR [None]
